FAERS Safety Report 6872491-8 (Version None)
Quarter: 2010Q3

REPORT INFORMATION
  Report Type: 
  Country: None (occurrence: None)
  Receive Date: 20100723
  Receipt Date: 20081005
  Transmission Date: 20110219
  Serious: Yes (Life-Threatening, Hospitalization, Other)
  Sender: FDA-Public Use
  Company Number: US-PFIZER INC-2008084573

PATIENT
  Sex: Female
  Weight: 46.3 kg

DRUGS (2)
  1. CHANTIX [Suspect]
     Indication: SMOKING CESSATION THERAPY
     Route: 048
     Dates: start: 20080101, end: 20080901
  2. CARDIOVASCULAR SYSTEM DRUGS [Concomitant]

REACTIONS (3)
  - INTENTIONAL DRUG MISUSE [None]
  - NAUSEA [None]
  - SUICIDE ATTEMPT [None]
